FAERS Safety Report 4956462-4 (Version None)
Quarter: 2006Q1

REPORT INFORMATION
  Report Type: 
  Country: None (occurrence: None)
  Receive Date: 20060328
  Receipt Date: 20060328
  Transmission Date: 20060701
  Serious: Yes (Hospitalization)
  Sender: FDA-Public Use
  Company Number: None

PATIENT
  Age: 55 Year
  Sex: Female

DRUGS (2)
  1. CLINDAMYCIN HCL [Suspect]
     Indication: TOOTH INFECTION
     Dosage: 150   T.I.D.  P.O.
     Route: 048
     Dates: start: 20060311, end: 20060318
  2. AMOXICILLIN [Suspect]
     Indication: TOOTH INFECTION
     Dosage: 500   T.I.D.   P.O.
     Route: 048
     Dates: start: 20060311, end: 20060318

REACTIONS (3)
  - ABASIA [None]
  - FALL [None]
  - MUSCLE SPASMS [None]
